FAERS Safety Report 13722371 (Version 1)
Quarter: 2017Q3

REPORT INFORMATION
  Report Type: Spontaneous
  Country: US (occurrence: US)
  Receive Date: 20170706
  Receipt Date: 20170706
  Transmission Date: 20171127
  Serious: No
  Sender: FDA-Public Use
  Company Number: US-ASTRAZENECA-2017SE69225

PATIENT
  Sex: Female

DRUGS (4)
  1. SEROQUEL XR [Suspect]
     Active Substance: QUETIAPINE FUMARATE
     Indication: BIPOLAR DISORDER
     Route: 048
  2. SEROQUEL XR [Suspect]
     Active Substance: QUETIAPINE FUMARATE
     Indication: MIGRAINE
     Route: 048
  3. SEROQUEL XR [Suspect]
     Active Substance: QUETIAPINE FUMARATE
     Indication: BIPOLAR DISORDER
     Route: 048
  4. SEROQUEL XR [Suspect]
     Active Substance: QUETIAPINE FUMARATE
     Indication: MIGRAINE
     Route: 048

REACTIONS (3)
  - Blepharospasm [Not Recovered/Not Resolved]
  - Product use in unapproved indication [Unknown]
  - Off label use [Unknown]
